FAERS Safety Report 7610624-6 (Version None)
Quarter: 2011Q3

REPORT INFORMATION
  Report Type: 
  Country: None (occurrence: None)
  Receive Date: 20110715
  Receipt Date: 20110706
  Transmission Date: 20111222
  Serious: Yes (Disabling, Other)
  Sender: FDA-Public Use
  Company Number: TR-BAYER-2011-042410

PATIENT
  Sex: Female

DRUGS (1)
  1. MIRENA [Suspect]
     Dosage: UNK
     Dates: start: 20101101, end: 20110601

REACTIONS (5)
  - FIBROMYALGIA [None]
  - PAIN [None]
  - ABORTION [None]
  - THROMBOSIS [None]
  - PREGNANCY WITH CONTRACEPTIVE DEVICE [None]
